FAERS Safety Report 7435141-8 (Version None)
Quarter: 2011Q2

REPORT INFORMATION
  Report Type: 
  Country: None (occurrence: None)
  Receive Date: 20110425
  Receipt Date: 20110418
  Transmission Date: 20111010
  Serious: Yes (Life-Threatening, Hospitalization)
  Sender: FDA-Public Use
  Company Number: PHHY2011US06955

PATIENT
  Sex: Male

DRUGS (10)
  1. CLOZARIL [Suspect]
     Dosage: 300 MG, UNK
  2. LOXAPINE [Concomitant]
     Indication: SCHIZOPHRENIA
     Dosage: 25 MG, BID
  3. ZIPRASIDONE [Concomitant]
     Indication: DEPRESSION
  4. LOXAPINE [Concomitant]
     Indication: DEPRESSION
  5. CITALOPRAM [Concomitant]
     Indication: SCHIZOPHRENIA
     Dosage: Q
     Route: 048
  6. ZIPRASIDONE [Concomitant]
     Indication: SCHIZOPHRENIA
     Route: 048
  7. CLOZARIL [Suspect]
     Indication: DEPRESSION
     Dosage: 200 MG, UNK
  8. CITALOPRAM [Concomitant]
     Indication: DEPRESSION
  9. CLOZARIL [Suspect]
     Indication: SCHIZOPHRENIA
     Dosage: 100 MG,
  10. CLOZARIL [Suspect]
     Dosage: 800 MG, UNK

REACTIONS (5)
  - RENAL FAILURE ACUTE [None]
  - PNEUMONIA [None]
  - MALAISE [None]
  - PYOTHORAX [None]
  - SEPSIS [None]
